APPROVED DRUG PRODUCT: PLENDIL
Active Ingredient: FELODIPINE
Strength: 5MG **Federal Register determination that product was not discontinued or withdrawn for safety or effectiveness reasons**
Dosage Form/Route: TABLET, EXTENDED RELEASE;ORAL
Application: N019834 | Product #001
Applicant: ASTRAZENECA PHARMACEUTICALS LP
Approved: Jul 25, 1991 | RLD: Yes | RS: No | Type: DISCN